FAERS Safety Report 13594225 (Version 2)
Quarter: 2017Q2

REPORT INFORMATION
  Report Type: Spontaneous
  Country: US (occurrence: US)
  Receive Date: 20170530
  Receipt Date: 20170607
  Transmission Date: 20170830
  Serious: Yes (Other)
  Sender: FDA-Public Use
  Company Number: US-AUROBINDO-AUR-APL-2017-34561

PATIENT
  Age: 41 Year
  Sex: Female

DRUGS (1)
  1. IBUPROFEN. [Suspect]
     Active Substance: IBUPROFEN
     Indication: PRODUCT USED FOR UNKNOWN INDICATION

REACTIONS (14)
  - Conjunctivitis [Recovered/Resolved]
  - Iritis [Recovered/Resolved]
  - Haemoptysis [Recovered/Resolved]
  - Back pain [Recovered/Resolved]
  - Oedema peripheral [Recovered/Resolved]
  - Eye pain [Recovered/Resolved]
  - Viral upper respiratory tract infection [Not Recovered/Not Resolved]
  - Granulomatosis with polyangiitis [Recovered/Resolved]
  - Ocular hyperaemia [Recovered/Resolved]
  - Renal impairment [Recovered/Resolved]
  - Acute kidney injury [Recovered/Resolved]
  - Keratitis [Recovered/Resolved]
  - Nausea [Recovered/Resolved]
  - Vision blurred [Recovered/Resolved]
